FAERS Safety Report 17436576 (Version 5)
Quarter: 2020Q2

REPORT INFORMATION
  Report Type: Report from Study
  Country: US (occurrence: US)
  Receive Date: 20200219
  Receipt Date: 20200514
  Transmission Date: 20200713
  Serious: No
  Sender: FDA-Public Use
  Company Number: NVSC2020US045152

PATIENT
  Age: 59 Year
  Sex: Female

DRUGS (2)
  1. ENTRESTO [Suspect]
     Active Substance: SACUBITRIL\VALSARTAN
     Indication: CARDIAC FAILURE
     Dosage: UNK
     Route: 065
  2. ENTRESTO [Suspect]
     Active Substance: SACUBITRIL\VALSARTAN
     Dosage: 2 DF, BID
     Route: 065

REACTIONS (6)
  - Arthralgia [Unknown]
  - Dyspnoea [Unknown]
  - Incorrect dose administered [Unknown]
  - Memory impairment [Unknown]
  - Fatigue [Unknown]
  - Fluid imbalance [Unknown]
